FAERS Safety Report 4764621-9 (Version None)
Quarter: 2005Q3

REPORT INFORMATION
  Report Type: 
  Country: None (occurrence: None)
  Receive Date: 20050907
  Receipt Date: 20050829
  Transmission Date: 20060218
  Serious: Yes (Hospitalization)
  Sender: FDA-Public Use
  Company Number: TPA2005A00986

PATIENT
  Age: 59 Year
  Sex: Female
  Weight: 76.2043 kg

DRUGS (10)
  1. ACTOS [Suspect]
     Indication: DIABETES MELLITUS NON-INSULIN-DEPENDENT
     Dosage: 30 MG, 1 IN 1 D, PER ORAL
     Route: 048
     Dates: start: 20050129
  2. CARTIA XT [Concomitant]
  3. ZETIA [Concomitant]
  4. LIPITOR [Concomitant]
  5. SYNTHROID [Concomitant]
  6. ASPIRIN [Concomitant]
  7. FLUOXETINE [Concomitant]
  8. ALPRAZOLAM [Concomitant]
  9. FUROSEMIDE [Concomitant]
  10. ACTONEL [Concomitant]

REACTIONS (4)
  - ANGINA UNSTABLE [None]
  - ANGIOPATHY [None]
  - NEPHROLITHIASIS [None]
  - SHOULDER PAIN [None]
